FAERS Safety Report 7906410-X (Version None)
Quarter: 2011Q4

REPORT INFORMATION
  Report Type: 
  Country: None (occurrence: None)
  Receive Date: 20111110
  Receipt Date: 20111104
  Transmission Date: 20120403
  Serious: Yes (Other)
  Sender: FDA-Public Use
  Company Number: US-PFIZER INC-2011272805

PATIENT
  Sex: Female

DRUGS (2)
  1. CADUET [Suspect]
  2. CHANTIX [Suspect]

REACTIONS (1)
  - BLOOD PRESSURE INCREASED [None]
